FAERS Safety Report 9204518 (Version 1)
Quarter: 2013Q1

REPORT INFORMATION
  Report Type: Spontaneous
  Country: US (occurrence: None)
  Receive Date: 20120709
  Receipt Date: 20120709
  Transmission Date: 20140127
  Serious: No
  Sender: FDA-Public Use
  Company Number: 2012HGS-003444

PATIENT
  Age: 56 Year
  Sex: Female
  Weight: 59.88 kg

DRUGS (7)
  1. BENLYSTA [Suspect]
     Indication: SYSTEMIC LUPUS ERYTHEMATOSUS
     Dosage: 1 IN 28 D
     Route: 041
     Dates: start: 20120327
  2. PLAQUENIL (HYDROCHLORQUINE SULFATE) (HYDROCHLOROQUINE SULFATE) [Concomitant]
  3. TRAMADOL (TRAMADOL) (TRAMADOL) [Concomitant]
  4. ZANAFLEX (TIZANIDINE HYDROCHLORIDE) (TIZANIDINE HYDROCHLORIDE) [Concomitant]
  5. FUROSEMIDE [Concomitant]
  6. ZOFRAN (ONDANSETRON) (ONDANSETRON) [Concomitant]
  7. GABAPENTIN (GABAPENTIN) (GABAPENTIN) [Concomitant]

REACTIONS (16)
  - Skin lesion [None]
  - Abdominal pain [None]
  - Abdominal tenderness [None]
  - Convulsion [None]
  - Malaise [None]
  - Chest discomfort [None]
  - Dyspnoea [None]
  - Feeling abnormal [None]
  - Dysgeusia [None]
  - Tongue coated [None]
  - Oedema peripheral [None]
  - Flushing [None]
  - Pruritus generalised [None]
  - Throat irritation [None]
  - Dysphonia [None]
  - Diarrhoea [None]
